FAERS Safety Report 15402407 (Version 1)
Quarter: 2018Q3

REPORT INFORMATION
  Report Type: Spontaneous
  Country: GB (occurrence: GB)
  Receive Date: 20180919
  Receipt Date: 20180919
  Transmission Date: 20181010
  Serious: Yes (Other)
  Sender: FDA-Public Use
  Company Number: GB-PFIZER INC-2018371535

PATIENT
  Sex: Female

DRUGS (2)
  1. SITAGLIPTIN [Suspect]
     Active Substance: SITAGLIPTIN
     Dosage: 100 MG, UNK
  2. SERTRALINE HCL [Suspect]
     Active Substance: SERTRALINE HYDROCHLORIDE
     Dosage: 100 MG, UNK
     Dates: start: 20180424, end: 20180606

REACTIONS (11)
  - Insomnia [Unknown]
  - Disorientation [Unknown]
  - Tremor [Unknown]
  - Blood pressure increased [Unknown]
  - Vomiting [Unknown]
  - Drug dispensing error [Unknown]
  - Heart rate irregular [Unknown]
  - Dysuria [Unknown]
  - Nausea [Unknown]
  - Hypoaesthesia [Unknown]
  - Diarrhoea [Unknown]

NARRATIVE: CASE EVENT DATE: 20180424
